FAERS Safety Report 5642440-9 (Version None)
Quarter: 2008Q1

REPORT INFORMATION
  Report Type: 
  Country: None (occurrence: None)
  Receive Date: 20080228
  Receipt Date: 20080220
  Transmission Date: 20080703
  Serious: Yes (Other)
  Sender: FDA-Public Use
  Company Number: BE-BAYER-200813826GPV

PATIENT
  Age: 71 Year
  Sex: Male

DRUGS (1)
  1. BETASERON [Suspect]
     Route: 058

REACTIONS (1)
  - ANEURYSM [None]
